FAERS Safety Report 6401000-2 (Version None)
Quarter: 2009Q4

REPORT INFORMATION
  Report Type: 
  Country: None (occurrence: None)
  Receive Date: 20091015
  Receipt Date: 20070303
  Transmission Date: 20100525
  Serious: Yes (Disabling)
  Sender: FDA-Public Use
  Company Number: US-ASTRAZENECA-2006UW08273

PATIENT
  Sex: Male
  Weight: 144.7 kg

DRUGS (20)
  1. SEROQUEL [Suspect]
     Dosage: 25 MG TO 400 MG
     Route: 048
     Dates: start: 20050415
  2. ALBUTEROL [Concomitant]
  3. FELODIPINE [Concomitant]
  4. FUROSEMIDE [Concomitant]
  5. IBUPROFEN [Concomitant]
  6. IPRATROPIUM BROMIDE [Concomitant]
  7. LISINOPRIL [Concomitant]
  8. LITHIUM [Concomitant]
  9. METHADONE HYDROCHLORIDE [Concomitant]
  10. METOPROLOL [Concomitant]
  11. OMEPRAZOLE [Concomitant]
  12. SIMVASTATIN [Concomitant]
  13. HYDROXYZINE PAM [Concomitant]
  14. ARIPIPRAZOLE [Concomitant]
  15. TERAZOSIN [Concomitant]
  16. DOXYCYCLINE [Concomitant]
  17. OLANZAPINE [Concomitant]
  18. ROSIGLITAZONE [Concomitant]
  19. IOPROMIDE [Concomitant]
  20. CELEXA [Concomitant]

REACTIONS (1)
  - ILL-DEFINED DISORDER [None]
